FAERS Safety Report 9868531 (Version 1)
Quarter: 2014Q1

REPORT INFORMATION
  Report Type: Spontaneous
  Country: DE (occurrence: DE)
  Receive Date: 20140204
  Receipt Date: 20140204
  Transmission Date: 20141002
  Serious: Yes (Other)
  Sender: FDA-Public Use
  Company Number: DE-MYLANLABS-2014S1001521

PATIENT
  Age: 48 Year
  Sex: Female

DRUGS (1)
  1. ITRACONAZOLE [Suspect]
     Indication: ASPERGILLUS INFECTION
     Dosage: 2X200MG
     Route: 048
     Dates: start: 20130820, end: 20131210

REACTIONS (4)
  - Fatigue [Recovered/Resolved]
  - Nausea [Recovered/Resolved]
  - Urine abnormality [Recovered/Resolved]
  - Hepatic enzyme increased [Recovered/Resolved]
